FAERS Safety Report 6458089-4 (Version None)
Quarter: 2009Q4

REPORT INFORMATION
  Report Type: 
  Country: None (occurrence: None)
  Receive Date: 20091125
  Receipt Date: 20091117
  Transmission Date: 20100525
  Serious: Yes (Hospitalization)
  Sender: FDA-Public Use
  Company Number: US-GENENTECH-294508

PATIENT
  Sex: Male
  Weight: 23.2 kg

DRUGS (1)
  1. SOMATROPIN [Suspect]
     Indication: PRADER-WILLI SYNDROME
     Dosage: 0.6 MG, 6/WEEK
     Dates: start: 20051207

REACTIONS (1)
  - SLEEP APNOEA SYNDROME [None]
